FAERS Safety Report 13250331 (Version 2)
Quarter: 2017Q1

REPORT INFORMATION
  Report Type: Spontaneous
  Country: JP (occurrence: JP)
  Receive Date: 20170218
  Receipt Date: 20170317
  Transmission Date: 20170428
  Serious: Yes (Death, Other)
  Sender: FDA-Public Use
  Company Number: JP-AMGEN-JPNSP2017024098

PATIENT
  Age: 74 Year
  Sex: Female

DRUGS (7)
  1. GRAN [Suspect]
     Active Substance: FILGRASTIM
     Indication: ADVERSE EVENT
     Dosage: 75 MCG, QD (1 IN 1 D)
     Route: 041
     Dates: start: 20140414, end: 20140414
  2. METRONIDAZOLE. [Concomitant]
     Active Substance: METRONIDAZOLE
     Dosage: UNK, BID
     Route: 061
  3. ZANTAC [Concomitant]
     Active Substance: RANITIDINE HYDROCHLORIDE
     Indication: PREMEDICATION
     Dosage: 50 MG, QD (1 IN 1 D)
     Route: 041
     Dates: start: 20140407, end: 20140407
  4. AVASTIN [Suspect]
     Active Substance: BEVACIZUMAB
     Indication: BREAST CANCER
     Dosage: 10 MG/KG, QD (1 IN 1 D)
     Route: 041
     Dates: start: 20140407, end: 20140407
  5. POLARAMINE [Concomitant]
     Active Substance: DEXCHLORPHENIRAMINE MALEATE
     Indication: PREMEDICATION
     Dosage: 10 MG, QD (1 IN 1 D)
     Route: 041
     Dates: start: 20140407, end: 20140407
  6. DECADRON [Concomitant]
     Active Substance: DEXAMETHASONE
     Indication: BREAST CANCER
     Dosage: 6.6 MG, QD (1 IN 1 D)
     Route: 041
     Dates: start: 20140407, end: 20140407
  7. TAXOL [Suspect]
     Active Substance: PACLITAXEL
     Indication: BREAST CANCER
     Dosage: 124.8 MG, QD (1 IN 1 D)
     Route: 041
     Dates: start: 20140407, end: 20140407

REACTIONS (4)
  - White blood cell count decreased [Unknown]
  - Dementia [Unknown]
  - Neutrophil count decreased [Unknown]
  - Death [Fatal]

NARRATIVE: CASE EVENT DATE: 201404
